FAERS Safety Report 10536990 (Version 3)
Quarter: 2014Q4

REPORT INFORMATION
  Report Type: Spontaneous
  Country: JP (occurrence: JP)
  Receive Date: 20141022
  Receipt Date: 20141031
  Transmission Date: 20150529
  Serious: Yes (Death)
  Sender: FDA-Public Use
  Company Number: JP-009507513-1409JPN013304

PATIENT
  Age: 63 Year
  Sex: Male
  Weight: 42 kg

DRUGS (6)
  1. AMBISOME [Concomitant]
     Active Substance: AMPHOTERICIN B
     Indication: BRONCHOPULMONARY ASPERGILLOSIS
     Dosage: 5 MG/KG, QD
     Route: 041
     Dates: start: 20140827, end: 20140912
  2. CANCIDAS [Suspect]
     Active Substance: CASPOFUNGIN ACETATE
     Indication: CANDIDA PNEUMONIA
  3. AMBISOME [Concomitant]
     Active Substance: AMPHOTERICIN B
     Indication: CANDIDA PNEUMONIA
  4. CANCIDAS [Suspect]
     Active Substance: CASPOFUNGIN ACETATE
     Indication: BRONCHOPULMONARY ASPERGILLOSIS
     Dosage: 70 MG, 1/1 DAY
     Route: 041
     Dates: start: 20140910, end: 20140910
  5. CANCIDAS [Suspect]
     Active Substance: CASPOFUNGIN ACETATE
     Indication: BRONCHOPULMONARY ASPERGILLOSIS
     Dosage: 50 MG, 1/1 DAY
     Route: 041
     Dates: start: 20140911, end: 20140912
  6. CANCIDAS [Suspect]
     Active Substance: CASPOFUNGIN ACETATE
     Indication: CANDIDA PNEUMONIA

REACTIONS (2)
  - Pneumonia [Fatal]
  - Drug ineffective [Unknown]

NARRATIVE: CASE EVENT DATE: 201409
